FAERS Safety Report 8867771 (Version 1)
Quarter: 2012Q4

REPORT INFORMATION
  Report Type: 
  Country: US (occurrence: US)
  Receive Date: 20121026
  Receipt Date: 20121026
  Transmission Date: 20130627
  Serious: No
  Sender: FDA-Public Use
  Company Number: US-AMGEN-USASP2012040636

PATIENT
  Age: 42 Year
  Sex: Female
  Weight: 31.75 kg

DRUGS (16)
  1. ENBREL [Suspect]
     Indication: PRODUCT USED FOR UNKNOWN INDICATION
     Dosage: 50 mg, qwk
  2. TOPAMAX [Concomitant]
     Dosage: 100 mg, UNK
  3. TRILIPIX [Concomitant]
     Dosage: 135 mg, UNK
  4. GABAPENTIN [Concomitant]
     Dosage: 100 mg, UNK
  5. OMEPRAZOLE [Concomitant]
     Dosage: 20 mg, UNK
  6. PRAVASTATIN [Concomitant]
     Dosage: 20 mg, UNK
  7. ALBUTEROL                          /00139501/ [Concomitant]
     Dosage: 90 mug, UNK
  8. IMITREX                            /01044801/ [Concomitant]
     Dosage: 25 mg, UNK
  9. ESTRADIOL [Concomitant]
     Dosage: 0.025 mg, UNK
  10. OXYCODONE [Concomitant]
     Dosage: 5 mg, UNK
  11. MORPHINE [Concomitant]
     Dosage: 60 mg, UNK
  12. MULTIVITAMIN                       /00097801/ [Concomitant]
     Dosage: UNK
  13. BUTALBITAL [Concomitant]
  14. FISH OIL [Concomitant]
     Dosage: UNK
  15. VIT D [Concomitant]
     Dosage: UNK
  16. FOLIC ACID [Concomitant]
     Dosage: 5 mg, UNK

REACTIONS (1)
  - Drug ineffective [Unknown]
